FAERS Safety Report 16994086 (Version 1)
Quarter: 2019Q4

REPORT INFORMATION
  Report Type: Spontaneous
  Country: US (occurrence: US)
  Receive Date: 20190924
  Receipt Date: 20190924
  Transmission Date: 20200122
  Serious: No
  Sender: FDA-Public Use
  Company Number: None

PATIENT
  Age: 30 Year
  Sex: Female

DRUGS (2)
  1. AMBRISENTAN [Concomitant]
     Active Substance: AMBRISENTAN
  2. SILDENAFIL TAB 20 MG [Suspect]
     Active Substance: SILDENAFIL
     Route: 048
     Dates: start: 201903

REACTIONS (3)
  - Myocardial oedema [None]
  - Fluid retention [None]
  - Pulmonary oedema [None]

NARRATIVE: CASE EVENT DATE: 20190924
